FAERS Safety Report 21323289 (Version 1)
Quarter: 2022Q3

REPORT INFORMATION
  Report Type: Spontaneous
  Country: GB (occurrence: None)
  Receive Date: 20220910
  Receipt Date: 20220910
  Transmission Date: 20221026
  Serious: No
  Sender: FDA-Public Use
  Company Number: None

PATIENT
  Age: 61 Year
  Sex: Male
  Weight: 66 kg

DRUGS (1)
  1. BLUE LIZARD SENSITIVE SPF 50 SUNSCREEN [Suspect]
     Active Substance: TITANIUM DIOXIDE\ZINC OXIDE
     Indication: Prophylaxis against solar radiation
     Dates: start: 20220821, end: 20220824

REACTIONS (7)
  - Dermatitis contact [None]
  - Hypersensitivity [None]
  - Urticaria [None]
  - Skin swelling [None]
  - Blister [None]
  - Hyperaesthesia [None]
  - Product label issue [None]

NARRATIVE: CASE EVENT DATE: 20220823
